FAERS Safety Report 19740717 (Version 3)
Quarter: 2021Q3

REPORT INFORMATION
  Report Type: Spontaneous
  Country: BR (occurrence: BR)
  Receive Date: 20210824
  Receipt Date: 20210913
  Transmission Date: 20211014
  Serious: Yes (Other)
  Sender: FDA-Public Use
  Company Number: BR-ALLERGAN-2129333US

PATIENT

DRUGS (1)
  1. FOSFOMYCIN TROMETHAMINE ? BP [Suspect]
     Active Substance: FOSFOMYCIN TROMETHAMINE
     Indication: EXPOSURE DURING PREGNANCY
     Dosage: 1 DF, SINGLE
     Route: 064

REACTIONS (2)
  - Pregnancy [Unknown]
  - Cerebral ventricle dilatation [Unknown]
